FAERS Safety Report 19496263 (Version 1)
Quarter: 2021Q3

REPORT INFORMATION
  Report Type: Spontaneous
  Country: US (occurrence: US)
  Receive Date: 20210702
  Receipt Date: 20210702
  Transmission Date: 20211014
  Serious: Yes (Disabling)
  Sender: FDA-Public Use
  Company Number: None

PATIENT
  Age: 28 Year
  Sex: Female
  Weight: 52.2 kg

DRUGS (3)
  1. CIPROFLOXACIN. [Suspect]
     Active Substance: CIPROFLOXACIN
     Indication: EVIDENCE BASED TREATMENT
     Route: 048
     Dates: start: 20201031, end: 20201109
  2. CIPROFLOXACIN. [Suspect]
     Active Substance: CIPROFLOXACIN
     Indication: INFECTION
     Route: 048
     Dates: start: 20201031, end: 20201109
  3. TRISPRINTEC BIRTH CONTROL [Concomitant]

REACTIONS (22)
  - Arthralgia [None]
  - Paraesthesia [None]
  - Collagen disorder [None]
  - Pain [None]
  - Tendon disorder [None]
  - Anxiety [None]
  - Depression [None]
  - Impaired driving ability [None]
  - Quality of life decreased [None]
  - Hypersensitivity [None]
  - Sensory disturbance [None]
  - Muscular weakness [None]
  - Musculoskeletal disorder [None]
  - Exercise tolerance decreased [None]
  - Ligament rupture [None]
  - Skin disorder [None]
  - Impaired work ability [None]
  - Hypoaesthesia [None]
  - Tendon rupture [None]
  - Tendon pain [None]
  - Suicidal ideation [None]
  - Insomnia [None]

NARRATIVE: CASE EVENT DATE: 20201031
